FAERS Safety Report 14991183 (Version 1)
Quarter: 2018Q2

REPORT INFORMATION
  Report Type: Report from Study
  Country: CO (occurrence: CO)
  Receive Date: 20180608
  Receipt Date: 20180608
  Transmission Date: 20180711
  Serious: Yes (Other)
  Sender: FDA-Public Use
  Company Number: CO-SA-2017SA212927

PATIENT
  Age: 51 Year
  Sex: Female

DRUGS (1)
  1. ALEMTUZUMAB [Suspect]
     Active Substance: ALEMTUZUMAB
     Indication: MULTIPLE SCLEROSIS
     Dosage: UNK UNK,QD
     Route: 041
     Dates: start: 20170927, end: 20171001

REACTIONS (8)
  - Urinary tract infection bacterial [Not Recovered/Not Resolved]
  - White blood cell count decreased [Recovered/Resolved]
  - Leukocyturia [Not Recovered/Not Resolved]
  - Crystal urine present [Recovered/Resolved]
  - Bacteriuria [Not Recovered/Not Resolved]
  - Haematuria [Recovered/Resolved]
  - Proteinuria [Recovered/Resolved]
  - Crystal urine present [Recovered/Resolved]

NARRATIVE: CASE EVENT DATE: 20171028
